FAERS Safety Report 6159034-1 (Version None)
Quarter: 2009Q2

REPORT INFORMATION
  Report Type: 
  Country: None (occurrence: None)
  Receive Date: 20090417
  Receipt Date: 20090407
  Transmission Date: 20091009
  Serious: Yes (Other)
  Sender: FDA-Public Use
  Company Number: DZ-PFIZER INC-2009194625

PATIENT

DRUGS (2)
  1. PREGABALIN [Suspect]
     Indication: POLYNEUROPATHY
     Route: 048
     Dates: start: 20080801, end: 20090201
  2. INSULIN [Concomitant]
     Dosage: UNK

REACTIONS (1)
  - CHILAIDITI'S SYNDROME [None]
